FAERS Safety Report 11537478 (Version 2)
Quarter: 2015Q4

REPORT INFORMATION
  Report Type: Spontaneous
  Country: US (occurrence: US)
  Receive Date: 20150922
  Receipt Date: 20151110
  Transmission Date: 20160304
  Serious: No
  Sender: FDA-Public Use
  Company Number: US-PFIZER INC-2015313223

PATIENT
  Age: 72 Year
  Sex: Male
  Weight: 68.48 kg

DRUGS (1)
  1. VFEND [Suspect]
     Active Substance: VORICONAZOLE
     Dosage: UNK
     Dates: end: 2015

REACTIONS (2)
  - Dizziness [Unknown]
  - Liver disorder [Unknown]
